FAERS Safety Report 8716168 (Version 2)
Quarter: 2012Q4

REPORT INFORMATION
  Report Type: 
  Country: US (occurrence: US)
  Receive Date: 20120809
  Receipt Date: 20120907
  Transmission Date: 20130627
  Serious: No
  Sender: FDA-Public Use
  Company Number: US-ASTRAZENECA-2012SE50938

PATIENT
  Age: 64 Year
  Sex: Female

DRUGS (1)
  1. SYMBICORT PMDI [Suspect]
     Dosage: UNKNOWN FREQUENCY
     Route: 055

REACTIONS (3)
  - Wheezing [Unknown]
  - Wheezing [Recovered/Resolved]
  - Intentional drug misuse [Unknown]
